FAERS Safety Report 12477727 (Version 1)
Quarter: 2016Q2

REPORT INFORMATION
  Report Type: Spontaneous
  Country: US (occurrence: US)
  Receive Date: 20160617
  Receipt Date: 20160617
  Transmission Date: 20160815
  Serious: No
  Sender: FDA-Public Use
  Company Number: US-ASTRAZENECA-2016SE48178

PATIENT
  Sex: Female
  Weight: 88.5 kg

DRUGS (17)
  1. FARXIGA [Suspect]
     Active Substance: DAPAGLIFLOZIN PROPANEDIOL
     Indication: DIABETES MELLITUS
     Route: 048
     Dates: start: 201603
  2. FARXIGA [Suspect]
     Active Substance: DAPAGLIFLOZIN PROPANEDIOL
     Indication: DIABETES MELLITUS
     Route: 048
     Dates: start: 20160425
  3. FLUCONAZOLE. [Concomitant]
     Active Substance: FLUCONAZOLE
     Indication: URINARY TRACT INFECTION
     Route: 048
  4. ATORVASTATIN [Concomitant]
     Active Substance: ATORVASTATIN
     Route: 048
  5. MELOXICAN [Concomitant]
     Active Substance: MELOXICAM
     Indication: ARTHRITIS
     Route: 048
  6. HUMALIN [Concomitant]
     Active Substance: INSULIN NOS
  7. ALBUTEROL. [Concomitant]
     Active Substance: ALBUTEROL
     Dosage: 50.0UG AS REQUIRED
  8. DIVALPROEX SODIUM. [Concomitant]
     Active Substance: DIVALPROEX SODIUM
  9. HYDROCHLOROTHIAZIDE LISINIPRIL [Suspect]
     Active Substance: HYDROCHLOROTHIAZIDE\LISINOPRIL
     Dosage: 20+25 TWO TIMES A DAY
     Route: 048
  10. AMLODIPINE [Concomitant]
     Active Substance: AMLODIPINE BESYLATE
     Route: 048
  11. FLUITAFONE [Concomitant]
     Indication: MULTIPLE ALLERGIES
     Dosage: 0.05
     Route: 045
  12. OVYEUTYMIN [Concomitant]
     Route: 048
  13. METFORMIN [Concomitant]
     Active Substance: METFORMIN HYDROCHLORIDE
     Indication: DIABETES MELLITUS
     Route: 048
  14. MAGNISIUM HYDROXIDE [Concomitant]
  15. LEVOTHYROXINE. [Concomitant]
     Active Substance: LEVOTHYROXINE
     Indication: THYROID DISORDER
     Route: 048
  16. CALCIUM CARBONATE. [Concomitant]
     Active Substance: CALCIUM CARBONATE
     Dosage: 840.0MG AS REQUIRED
     Route: 048
  17. GABAPENTAN [Concomitant]
     Indication: NEUROPATHY PERIPHERAL
     Route: 048

REACTIONS (3)
  - Blood cholesterol increased [Unknown]
  - Hypoaesthesia [Unknown]
  - Fungal infection [Unknown]
